FAERS Safety Report 5306465-5 (Version None)
Quarter: 2007Q2

REPORT INFORMATION
  Report Type: 
  Country: None (occurrence: None)
  Receive Date: 20070417
  Receipt Date: 20070412
  Transmission Date: 20071010
  Serious: Yes (Hospitalization)
  Sender: FDA-Public Use
  Company Number: URSO-2007-003

PATIENT
  Sex: Male

DRUGS (6)
  1. URSO 250 [Suspect]
     Indication: HEPATIC CIRRHOSIS
     Dosage: 300MG PO
     Route: 048
     Dates: start: 20060127, end: 20061226
  2. BAYMYCARD (NISOLDIPINE) [Concomitant]
  3. FAMOTIDINE [Concomitant]
  4. LACTULOSE [Concomitant]
  5. MUCOSOLVAN L (AMBROXOL HYDROCHLORIDE) [Concomitant]
  6. CLARITHROMYCIN [Concomitant]

REACTIONS (2)
  - ERYTHEMA MULTIFORME [None]
  - HEPATIC NEOPLASM MALIGNANT [None]
